FAERS Safety Report 8875806 (Version 1)
Quarter: 2012Q4

REPORT INFORMATION
  Report Type: 
  Country: US (occurrence: US)
  Receive Date: 20121030
  Receipt Date: 20121030
  Transmission Date: 20130627
  Serious: Yes (Death, Hospitalization)
  Sender: FDA-Public Use
  Company Number: US-GLAXOSMITHKLINE-A0998380A

PATIENT
  Age: 70 Year
  Sex: Male

DRUGS (13)
  1. ARIXTRA [Suspect]
     Indication: PRODUCT USED FOR UNKNOWN INDICATION
     Dosage: 10MG Per day
     Route: 058
     Dates: start: 20110822, end: 20121018
  2. ONDANSETRON [Suspect]
     Indication: PRODUCT USED FOR UNKNOWN INDICATION
  3. CHEMOTHERAPY [Concomitant]
  4. ZOFRAN [Concomitant]
  5. REGLAN [Concomitant]
  6. DUONEB [Concomitant]
  7. HUMALOG [Concomitant]
  8. LANTUS [Concomitant]
  9. ALLOPURINOL [Concomitant]
  10. MIRALAX [Concomitant]
  11. PRILOSEC [Concomitant]
  12. PROVENTIL [Concomitant]
  13. PULMICORT [Concomitant]

REACTIONS (3)
  - Cardiac arrest [Fatal]
  - Malignant neoplasm progression [Fatal]
  - Paracentesis [Unknown]
